FAERS Safety Report 23586710 (Version 5)
Quarter: 2024Q4

REPORT INFORMATION
  Report Type: Spontaneous
  Country: US (occurrence: US)
  Receive Date: 20240301
  Receipt Date: 20241209
  Transmission Date: 20250114
  Serious: No
  Sender: PFIZER
  Company Number: US-PFIZER INC-PV202400028661

PATIENT
  Age: 76 Year
  Sex: Female
  Weight: 62.222 kg

DRUGS (5)
  1. IBRANCE [Suspect]
     Active Substance: PALBOCICLIB
     Indication: HER2 negative breast cancer
     Dosage: 100 MG, TAKE 1 TABLET PO DAILY FOR 21 DAYS, THEN 7 DAYS OFF
     Route: 048
     Dates: start: 20230525
  2. IBRANCE [Suspect]
     Active Substance: PALBOCICLIB
     Indication: Breast cancer metastatic
  3. IBRANCE [Suspect]
     Active Substance: PALBOCICLIB
     Indication: Breast cancer female
  4. FASLODEX [Concomitant]
     Active Substance: FULVESTRANT
     Indication: HER2 negative breast cancer
     Dosage: UNK
     Dates: start: 20230525
  5. XGEVA [Concomitant]
     Active Substance: DENOSUMAB
     Indication: HER2 negative breast cancer
     Dosage: UNK
     Dates: start: 20230525

REACTIONS (1)
  - Pain [Unknown]
